FAERS Safety Report 18541579 (Version 4)
Quarter: 2021Q1

REPORT INFORMATION
  Report Type: Report from Study
  Country: US (occurrence: US)
  Receive Date: 20201124
  Receipt Date: 20210316
  Transmission Date: 20210419
  Serious: Yes (Other)
  Sender: FDA-Public Use
  Company Number: NVSC2020US305825

PATIENT
  Age: 30 Year
  Sex: Female

DRUGS (2)
  1. COSENTYX [Suspect]
     Active Substance: SECUKINUMAB
     Indication: PSORIASIS
     Dosage: 300 MG, QMO, (EVERY 4 WEEKS, MAITENANCE DOSE)
     Route: 058
     Dates: start: 20200818
  2. COSENTYX [Suspect]
     Active Substance: SECUKINUMAB
     Indication: PSORIATIC ARTHROPATHY

REACTIONS (3)
  - Psoriatic arthropathy [Not Recovered/Not Resolved]
  - Pain [Unknown]
  - Arthralgia [Unknown]

NARRATIVE: CASE EVENT DATE: 202008
